FAERS Safety Report 8592002-9 (Version None)
Quarter: 2012Q3

REPORT INFORMATION
  Report Type: 
  Country: None (occurrence: None)
  Receive Date: 20120814
  Receipt Date: 20120807
  Transmission Date: 20120928
  Serious: Yes (Other)
  Sender: FDA-Public Use
  Company Number: HU-PFIZER INC-2012192713

PATIENT
  Age: 57 Year
  Sex: Female
  Weight: 130 kg

DRUGS (7)
  1. FUROSEMID [Concomitant]
     Dosage: UNK
  2. METOPROLOL TARTRATE [Concomitant]
     Dosage: UNK
  3. CORVATON [Concomitant]
     Dosage: UNK
     Dates: start: 20111101
  4. LANTUS [Concomitant]
     Dosage: UNK
     Dates: start: 20010101
  5. KALIUM [Concomitant]
     Dosage: UNK
  6. LYRICA [Suspect]
     Indication: NEURALGIA
     Dosage: 150 MG, 2X/DAY
     Dates: start: 20120417, end: 20120501
  7. ACTRAPID [Concomitant]
     Dosage: UNK
     Dates: start: 20010101

REACTIONS (6)
  - CIRCULATORY COLLAPSE [None]
  - MALAISE [None]
  - NAUSEA [None]
  - FEELING HOT [None]
  - DIZZINESS [None]
  - CONFUSIONAL STATE [None]
